FAERS Safety Report 5158002-6 (Version None)
Quarter: 2006Q4

REPORT INFORMATION
  Report Type: 
  Country: None (occurrence: None)
  Receive Date: 20061116
  Receipt Date: 20061103
  Transmission Date: 20070319
  Serious: Yes (Other)
  Sender: FDA-Public Use
  Company Number: 2006127345

PATIENT
  Age: 82 Year
  Sex: Male
  Weight: 79.3795 kg

DRUGS (12)
  1. LYRICA [Suspect]
     Indication: BACK PAIN
     Dosage: 150 MG (50 MG, 3 IN 1 D), ORAL
     Route: 048
     Dates: start: 20060918
  2. LYRICA [Suspect]
     Indication: NEUROPATHY PERIPHERAL
     Dosage: 150 MG (50 MG, 3 IN 1 D), ORAL
     Route: 048
     Dates: start: 20060918
  3. LYRICA [Suspect]
     Indication: SCIATICA
     Dosage: 150 MG (50 MG, 3 IN 1 D), ORAL
     Route: 048
     Dates: start: 20060918
  4. OXYCODONE HCL [Concomitant]
  5. OXYCONTIN [Concomitant]
  6. ZOLOFT [Concomitant]
  7. PLETAL (CILOSTAZOL) [Concomitant]
  8. ZETIA [Concomitant]
  9. SYNTHROID [Concomitant]
  10. ATENOLOL [Concomitant]
  11. PRILOSEC [Concomitant]
  12. NASONEX [Concomitant]

REACTIONS (4)
  - ARTHRALGIA [None]
  - MYALGIA [None]
  - PAIN [None]
  - RED BLOOD CELL SEDIMENTATION RATE INCREASED [None]
